FAERS Safety Report 21908596 (Version 1)
Quarter: 2023Q1

REPORT INFORMATION
  Report Type: Spontaneous
  Country: CA (occurrence: CA)
  Receive Date: 20230125
  Receipt Date: 20230125
  Transmission Date: 20230418
  Serious: Yes (Death, Hospitalization)
  Sender: FDA-Public Use
  Company Number: CA-JNJFOC-20230140324

PATIENT
  Age: 88 Year
  Sex: Female
  Weight: 45 kg

DRUGS (1)
  1. INVOKANA [Suspect]
     Active Substance: CANAGLIFLOZIN
     Indication: Type 2 diabetes mellitus
     Route: 048

REACTIONS (8)
  - Cystitis klebsiella [Fatal]
  - Cystitis [Fatal]
  - Diabetic ketoacidosis [Fatal]
  - Depressed level of consciousness [Fatal]
  - Respiratory distress [Fatal]
  - Dehydration [Fatal]
  - Hyperglycaemia [Fatal]
  - Hyponatraemia [Fatal]
